FAERS Safety Report 16030591 (Version 3)
Quarter: 2019Q1

REPORT INFORMATION
  Report Type: Spontaneous
  Country: US (occurrence: US)
  Receive Date: 20190304
  Receipt Date: 20190311
  Transmission Date: 20190418
  Serious: No
  Sender: FDA-Public Use
  Company Number: US-PFIZER INC-2019086174

PATIENT
  Age: 60 Year
  Sex: Male

DRUGS (1)
  1. IBRANCE [Suspect]
     Active Substance: PALBOCICLIB
     Indication: GASTRIC CANCER
     Dosage: 75 MG, CYCLIC(DAILY FOR 21 DAYS AND 7 DAYS OFF)
     Route: 048

REACTIONS (3)
  - Product use in unapproved indication [Unknown]
  - Emotional disorder [Unknown]
  - Neoplasm progression [Unknown]
